FAERS Safety Report 14221653 (Version 1)
Quarter: 2017Q4

REPORT INFORMATION
  Report Type: Report from Study
  Country: US (occurrence: US)
  Receive Date: 20171124
  Receipt Date: 20171124
  Transmission Date: 20180321
  Serious: Yes (Hospitalization)
  Sender: FDA-Public Use
  Company Number: US-ACTELION-A-US2017-162653

PATIENT
  Age: 81 Year
  Sex: Male

DRUGS (2)
  1. TRACLEER [Suspect]
     Active Substance: BOSENTAN
     Indication: PULMONARY HYPERTENSION
     Dosage: 125 MG, UNK
     Route: 048
     Dates: start: 20171019
  2. GABAPENTIN. [Concomitant]
     Active Substance: GABAPENTIN

REACTIONS (3)
  - Gait disturbance [Not Recovered/Not Resolved]
  - Pyrexia [Not Recovered/Not Resolved]
  - Infection [Not Recovered/Not Resolved]
